FAERS Safety Report 10260281 (Version 1)
Quarter: 2014Q2

REPORT INFORMATION
  Report Type: Spontaneous
  Country: US (occurrence: US)
  Receive Date: 20140625
  Receipt Date: 20140625
  Transmission Date: 20141212
  Serious: No
  Sender: FDA-Public Use
  Company Number: US-SA-2014SA051323

PATIENT
  Sex: Female

DRUGS (4)
  1. AUBAGIO [Suspect]
     Indication: MULTIPLE SCLEROSIS
     Route: 048
     Dates: start: 20121123
  2. LEVOTHYROXINE [Concomitant]
     Indication: HYPOTHYROIDISM
  3. SIMVASTATIN [Concomitant]
     Indication: HYPERLIPIDAEMIA
  4. VITAMIN D3 [Concomitant]
     Indication: VITAMIN D DEFICIENCY

REACTIONS (1)
  - Blood alkaline phosphatase increased [Unknown]
